FAERS Safety Report 18657705 (Version 8)
Quarter: 2024Q2

REPORT INFORMATION
  Report Type: Spontaneous
  Country: FR (occurrence: FR)
  Receive Date: 20201223
  Receipt Date: 20240418
  Transmission Date: 20240716
  Serious: Yes (Death, Life-Threatening)
  Sender: FDA-Public Use
  Company Number: FR-RECORDATI-2020004997

PATIENT
  Sex: Female

DRUGS (9)
  1. DIAZEPAM [Suspect]
     Active Substance: DIAZEPAM
     Indication: Product used for unknown indication
     Route: 065
  2. METHADONE [Suspect]
     Active Substance: METHADONE HYDROCHLORIDE
     Indication: Product used for unknown indication
     Route: 065
  3. CODEINE [Suspect]
     Active Substance: CODEINE
     Indication: Product used for unknown indication
     Route: 065
  4. MORPHINE [Suspect]
     Active Substance: MORPHINE
     Indication: Product used for unknown indication
     Route: 065
  5. LYRICA [Suspect]
     Active Substance: PREGABALIN
     Indication: Product used for unknown indication
     Route: 065
  6. QUETIAPINE [Suspect]
     Active Substance: QUETIAPINE
     Indication: Product used for unknown indication
     Route: 065
  7. COCAINE [Suspect]
     Active Substance: COCAINE
     Indication: Product used for unknown indication
     Route: 065
  8. HERBALS\TETRAHYDROCANNABINOL UNSPECIFIED [Suspect]
     Active Substance: HERBALS\TETRAHYDROCANNABINOL UNSPECIFIED
     Indication: Product used for unknown indication
     Route: 065
  9. ALCOHOL [Concomitant]
     Active Substance: ALCOHOL
     Indication: Product used for unknown indication
     Route: 065

REACTIONS (5)
  - Visceral congestion [Fatal]
  - Asphyxia [Fatal]
  - Cardiopulmonary failure [Fatal]
  - Toxicity to various agents [Fatal]
  - Substance dependence [Unknown]
